FAERS Safety Report 14183583 (Version 3)
Quarter: 2017Q4

REPORT INFORMATION
  Report Type: Spontaneous
  Country: CH (occurrence: CH)
  Receive Date: 20171113
  Receipt Date: 20171122
  Transmission Date: 20180321
  Serious: Yes (Hospitalization)
  Sender: FDA-Public Use
  Company Number: CH-PFIZER INC-2017480927

PATIENT
  Age: 74 Year
  Sex: Female

DRUGS (11)
  1. TEPADINA [Suspect]
     Active Substance: THIOTEPA
     Dosage: 45 MG, UNK
     Dates: start: 20170922, end: 20170924
  2. PANTOZOL [Concomitant]
     Active Substance: PANTOPRAZOLE SODIUM
     Dosage: 40MG, 1X/DAY
     Route: 048
  3. CYTOSAR [Suspect]
     Active Substance: CYTARABINE
     Indication: CENTRAL NERVOUS SYSTEM LYMPHOMA
     Dosage: 1000MG/M2, CYCLIC (3 CYCLES PERFORMED)
     Route: 041
     Dates: start: 20170718, end: 20170923
  4. MABTHERA [Suspect]
     Active Substance: RITUXIMAB
     Indication: CENTRAL NERVOUS SYSTEM LYMPHOMA
     Dosage: 375MG/M2, CYCLIC (3 CYCLES PERFORMED)
     Route: 041
     Dates: start: 20170718, end: 20171020
  5. MABTHERA [Suspect]
     Active Substance: RITUXIMAB
     Dosage: 570 MG (ADMINISTERED IN D5 AND D1)
     Dates: start: 20170922, end: 20170929
  6. TEPADINA [Suspect]
     Active Substance: THIOTEPA
     Indication: CENTRAL NERVOUS SYSTEM LYMPHOMA
     Dosage: 30 MG/M2, CYCLIC (3 CYCLES PERFORMED)
     Route: 041
     Dates: start: 20170718, end: 20170924
  7. ATACAND [Concomitant]
     Active Substance: CANDESARTAN CILEXETIL
     Indication: ISCHAEMIC CARDIOMYOPATHY
     Dosage: 8MG, 1X/DAY
     Route: 048
  8. CYTOSAR [Suspect]
     Active Substance: CYTARABINE
     Dosage: 1500 MG X2 (ADMINISTERED ON D1 AND D2)
     Dates: start: 20170922, end: 20170923
  9. LORAMET [Concomitant]
     Active Substance: LORMETAZEPAM
     Dosage: 2MG, 1X/DAY
     Route: 048
  10. ASPIRIN CARDIO [Concomitant]
     Active Substance: ASPIRIN
     Indication: ISCHAEMIC CARDIOMYOPATHY
     Dosage: 100MG, 1X/DAY
     Route: 048
  11. CRESTOR [Concomitant]
     Active Substance: ROSUVASTATIN CALCIUM
     Indication: DYSLIPIDAEMIA
     Dosage: 10MG, 1X/DAY
     Route: 048

REACTIONS (4)
  - Anaemia [Recovering/Resolving]
  - Thrombocytopenia [Recovering/Resolving]
  - Neutropenia [Recovered/Resolved]
  - Febrile neutropenia [Recovered/Resolved]

NARRATIVE: CASE EVENT DATE: 20171002
